FAERS Safety Report 6739643-9 (Version None)
Quarter: 2010Q2

REPORT INFORMATION
  Report Type: 
  Country: None (occurrence: None)
  Receive Date: 20100525
  Receipt Date: 20100518
  Transmission Date: 20101027
  Serious: Yes (Hospitalization)
  Sender: FDA-Public Use
  Company Number: CA-ROCHE-670072

PATIENT
  Sex: Male
  Weight: 77.1 kg

DRUGS (3)
  1. BEVACIZUMAB [Suspect]
     Indication: GLIOBLASTOMA MULTIFORME
     Dosage: FORM: INFUSION
     Route: 042
     Dates: start: 20090925, end: 20091201
  2. BEVACIZUMAB [Suspect]
     Dosage: FORM: INFUSION
     Route: 042
     Dates: start: 20091221
  3. DECADRON [Concomitant]

REACTIONS (5)
  - ABDOMINAL PAIN [None]
  - CONVULSION [None]
  - COUGH [None]
  - H1N1 INFLUENZA [None]
  - RASH ERYTHEMATOUS [None]
